FAERS Safety Report 16138198 (Version 1)
Quarter: 2019Q1

REPORT INFORMATION
  Report Type: Spontaneous
  Country: FR (occurrence: FR)
  Receive Date: 20190330
  Receipt Date: 20190330
  Transmission Date: 20190418
  Serious: Yes (Hospitalization)
  Sender: FDA-Public Use
  Company Number: FR-ACCORD-117033

PATIENT
  Age: 85 Year
  Sex: Female

DRUGS (12)
  1. LANTUS [Concomitant]
     Active Substance: INSULIN GLARGINE
  2. NOVORAPID [Concomitant]
     Active Substance: INSULIN ASPART
  3. AMLODIPINE [Suspect]
     Active Substance: AMLODIPINE BESYLATE
     Indication: HYPERTENSION
     Route: 048
     Dates: end: 20170326
  4. SEROPRAM (CITALOPRAM HYDROBROMIDE) [Concomitant]
     Active Substance: CITALOPRAM HYDROBROMIDE
  5. CRESTOR [Concomitant]
     Active Substance: ROSUVASTATIN CALCIUM
  6. MOTILIUM [Concomitant]
     Active Substance: DOMPERIDONE
  7. EUPRESSYL [Concomitant]
     Active Substance: URAPIDIL
  8. KARDEGIC [Concomitant]
     Active Substance: ASPIRIN DL-LYSINE
  9. LASILIX [Suspect]
     Active Substance: FUROSEMIDE
     Indication: CARDIAC FAILURE
     Route: 041
     Dates: start: 20170317
  10. APROVEL [Suspect]
     Active Substance: IRBESARTAN
     Indication: HYPERTENSION
     Route: 048
     Dates: end: 20170326
  11. ZYMAD [Concomitant]
     Active Substance: CHOLECALCIFEROL
  12. DAFALGAN [Concomitant]
     Active Substance: ACETAMINOPHEN

REACTIONS (1)
  - Acute kidney injury [Recovered/Resolved]

NARRATIVE: CASE EVENT DATE: 20170326
